FAERS Safety Report 6718338-1 (Version None)
Quarter: 2010Q2

REPORT INFORMATION
  Report Type: 
  Country: None (occurrence: None)
  Receive Date: 20100510
  Receipt Date: 20100426
  Transmission Date: 20101027
  Serious: Yes (Hospitalization)
  Sender: FDA-Public Use
  Company Number: NL-MEDIMMUNE-MEDI-0010644

PATIENT
  Sex: Male
  Weight: 9.73 kg

DRUGS (2)
  1. SYNAGIS [Suspect]
     Route: 030
     Dates: start: 20091009, end: 20091230
  2. SYNAGIS [Suspect]
     Route: 030
     Dates: start: 20100205, end: 20100225

REACTIONS (1)
  - HAEMOGLOBIN DECREASED [None]
